FAERS Safety Report 8557366-0 (Version None)
Quarter: 2012Q3

REPORT INFORMATION
  Report Type: 
  Country: None (occurrence: None)
  Receive Date: 20120801
  Receipt Date: 20120719
  Transmission Date: 20120928
  Serious: Yes (Hospitalization)
  Sender: FDA-Public Use
  Company Number: JP-PFIZER INC-2012163983

PATIENT
  Age: 69 Year
  Sex: Male
  Weight: 78 kg

DRUGS (2)
  1. LIPITOR [Suspect]
     Indication: HYPERCHOLESTEROLAEMIA
     Dosage: 10 MG, 1X/DAY
     Route: 048
     Dates: start: 20110930, end: 20120224
  2. GLIMEPIRIDE [Concomitant]
     Indication: DIABETES MELLITUS
     Dosage: 1 MG, DAILY

REACTIONS (1)
  - DIABETES MELLITUS [None]
